FAERS Safety Report 7217804-2 (Version None)
Quarter: 2011Q1

REPORT INFORMATION
  Report Type: 
  Country: None (occurrence: None)
  Receive Date: 20110110
  Receipt Date: 20101227
  Transmission Date: 20110831
  Serious: Yes (Hospitalization, Other)
  Sender: FDA-Public Use
  Company Number: PHHY2010FR89490

PATIENT
  Sex: Female

DRUGS (14)
  1. VANCOMYCIN [Suspect]
     Indication: PNEUMONIA
     Dosage: 1.5 MG PER DAY
     Route: 048
     Dates: start: 20101019, end: 20101026
  2. AMIKACIN [Suspect]
     Indication: PNEUMONIA
  3. VINCRISTINE [Suspect]
     Indication: HISTIOCYTOSIS HAEMATOPHAGIC
     Dosage: UNK
     Dates: start: 20101008
  4. CASPOFUNGIN [Concomitant]
     Dosage: UNK
  5. IMIPENEM AND CILASTATIN [Suspect]
     Dosage: UNK
     Dates: start: 20101019, end: 20101023
  6. VANCOMYCIN [Suspect]
     Dosage: 750 MG, UNK
     Dates: start: 20101111, end: 20101119
  7. ETOPOSIDE [Suspect]
     Dosage: UNK
     Dates: start: 20101027
  8. DOXORUBICIN [Suspect]
     Dosage: UNK
     Dates: start: 20101008
  9. KEPPRA [Concomitant]
     Dosage: 500 MG TID
     Dates: start: 20101103
  10. MEROPENEM [Suspect]
     Indication: LUNG DISORDER
     Dosage: 01 G THREE TIMES PER DAY
     Dates: start: 20101103, end: 20101110
  11. INVANZ [Concomitant]
     Dosage: UNK
     Dates: start: 20101023, end: 20101025
  12. MEROPENEM [Suspect]
     Dosage: 500 MG, TID
     Dates: start: 20101111, end: 20101121
  13. KEPPRA [Concomitant]
     Dosage: 250 TWO TIMES PER DAY
     Dates: end: 20101102
  14. KEPPRA [Concomitant]
     Dosage: 500 MG, BID
     Dates: start: 20101120, end: 20101125

REACTIONS (14)
  - DERMATITIS EXFOLIATIVE [None]
  - LUNG DISORDER [None]
  - SKIN LESION [None]
  - RASH MACULO-PAPULAR [None]
  - PRURITUS [None]
  - PNEUMOCYSTIS JIROVECI PNEUMONIA [None]
  - SKIN EXFOLIATION [None]
  - SEPTIC SHOCK [None]
  - BONE MARROW FAILURE [None]
  - OEDEMA PERIPHERAL [None]
  - RESPIRATORY FAILURE [None]
  - BRONCHOPULMONARY ASPERGILLOSIS [None]
  - CYTOMEGALOVIRUS COLITIS [None]
  - PNEUMONIA KLEBSIELLA [None]
